FAERS Safety Report 10431697 (Version 1)
Quarter: 2014Q3

REPORT INFORMATION
  Report Type: Spontaneous
  Country: TR (occurrence: None)
  Receive Date: 20140903
  Receipt Date: 20140903
  Transmission Date: 20150326
  Serious: Yes (Hospitalization, Other)
  Sender: FDA-Public Use
  Company Number: FK201403377

PATIENT
  Age: 33 Year
  Sex: Female

DRUGS (1)
  1. DIMENHYDRINATE INJECTION (MANUFACTURER UNKNOWN) (DIMENHYDRINATE) (DIMENHYDRINATE) [Suspect]
     Active Substance: DIMENHYDRINATE
     Indication: HYPEREMESIS GRAVIDARUM

REACTIONS (16)
  - Vomiting [None]
  - Tremor [None]
  - Headache [None]
  - Exposure during pregnancy [None]
  - Drug withdrawal syndrome [None]
  - Hyperhidrosis [None]
  - Decreased appetite [None]
  - Hypersomnia [None]
  - Vitamin B12 deficiency [None]
  - Intentional product misuse [None]
  - Nausea [None]
  - Somnolence [None]
  - Irritability [None]
  - Drug dependence [None]
  - Drug dependence, antepartum [None]
  - Depression [None]
